FAERS Safety Report 7254151-7 (Version None)
Quarter: 2011Q1

REPORT INFORMATION
  Report Type: 
  Country: None (occurrence: None)
  Receive Date: 20110129
  Receipt Date: 20100211
  Transmission Date: 20110831
  Serious: No
  Sender: FDA-Public Use
  Company Number: US-ABBOTT-10P-163-0626206-00

PATIENT
  Sex: Female
  Weight: 54.48 kg

DRUGS (6)
  1. HUMIRA [Suspect]
     Dates: start: 20100213
  2. SOMA [Concomitant]
     Indication: SLEEP DISORDER
  3. FOLIC ACID [Concomitant]
     Indication: RHEUMATOID ARTHRITIS
  4. HUMIRA [Suspect]
     Indication: RHEUMATOID ARTHRITIS
     Dates: start: 19990101, end: 20100101
  5. METHOTREXATE [Concomitant]
     Indication: RHEUMATOID ARTHRITIS
  6. ATIVAN [Concomitant]
     Indication: ANXIOLYTIC THERAPY

REACTIONS (3)
  - NASOPHARYNGITIS [None]
  - RHEUMATOID ARTHRITIS [None]
  - RHINORRHOEA [None]
